FAERS Safety Report 8106928 (Version 2)
Quarter: 2013Q4

REPORT INFORMATION
  Report Type: Spontaneous
  Country: US (occurrence: US)
  Receive Date: 20110825
  Receipt Date: 20131127
  Transmission Date: 20140711
  Serious: Yes (Other)
  Sender: FDA-Public Use
  Company Number: US-BAYER-2011-075640

PATIENT
  Age: 18 Year
  Sex: Female

DRUGS (5)
  1. YASMIN [Suspect]
     Dosage: UNK
  2. YAZ [Suspect]
     Dosage: UNK
  3. LORATADINE [Concomitant]
     Dosage: 10 MG, UNK
  4. CYCLOBENZAPRINE [Concomitant]
     Dosage: 10 MG, UNK
  5. ZOLOFT [Concomitant]
     Dosage: UNK
     Dates: start: 20090812

REACTIONS (2)
  - Gallbladder injury [None]
  - Cholecystitis [None]
